FAERS Safety Report 9619726 (Version 2)
Quarter: 2013Q4

REPORT INFORMATION
  Report Type: Report from Study
  Country: US (occurrence: US)
  Receive Date: 20131014
  Receipt Date: 20131029
  Transmission Date: 20140711
  Serious: Yes (Hospitalization)
  Sender: FDA-Public Use
  Company Number: US-MILLENNIUM PHARMACEUTICALS, INC.-2013MPI000541

PATIENT
  Age: 75 Year
  Sex: Female
  Weight: 55.2 kg

DRUGS (23)
  1. VELCADE [Suspect]
     Indication: PLASMA CELL MYELOMA
     Dosage: 1.3 MG/M2, UNK
     Route: 065
     Dates: start: 20130925
  2. LENALIDOMIDE [Suspect]
     Indication: PLASMA CELL MYELOMA
     Dosage: 15 MG, UNK
     Route: 065
     Dates: start: 20131001
  3. DEXAMETHASONE [Suspect]
     Indication: PLASMA CELL MYELOMA
     Dosage: 20 MG, UNK
     Route: 065
     Dates: start: 20130926
  4. LISINOPRIL [Concomitant]
  5. LOVASTATIN [Concomitant]
  6. IMITREX                            /01044801/ [Concomitant]
  7. HYDROCHLOROTHIAZIDE [Concomitant]
  8. FLONASE [Concomitant]
  9. ATIVAN [Concomitant]
  10. LEVOTHYROXINE SODIUM [Concomitant]
  11. PAROXETINE [Concomitant]
  12. OXYCODONE [Concomitant]
  13. PREVIDENT [Concomitant]
  14. FLUCONAZOLE [Concomitant]
  15. ZOFRAN                             /00955301/ [Concomitant]
  16. COMPAZINE                          /00013302/ [Concomitant]
  17. ERYTHROMYCIN [Concomitant]
  18. PRILOSEC                           /00661201/ [Concomitant]
  19. THERABREATH [Concomitant]
  20. MIRALAX                            /00754501/ [Concomitant]
  21. SENOKOT                            /00142201/ [Concomitant]
  22. VALACICLOVIR [Concomitant]
  23. PERIDEX                            /00016001/ [Concomitant]

REACTIONS (1)
  - Neck pain [Unknown]
